FAERS Safety Report 9477966 (Version 1)
Quarter: 2013Q3

REPORT INFORMATION
  Report Type: Spontaneous
  Country: US (occurrence: None)
  Receive Date: 20130822
  Receipt Date: 20130822
  Transmission Date: 20140515
  Serious: Yes (Hospitalization)
  Sender: FDA-Public Use
  Company Number: C-13-0444-W

PATIENT
  Age: 71 Year
  Sex: Female

DRUGS (5)
  1. METOPROLOL [Suspect]
     Indication: ATRIAL FIBRILLATION
     Dosage: 1/2 TAB AM, 1/4TAB PM QD
     Dates: start: 20130423, end: 20130605
  2. NEXIUM [Concomitant]
  3. VYTORIN [Concomitant]
  4. CALCIUM [Concomitant]
  5. B-COMPLEX VITAMINS [Concomitant]

REACTIONS (2)
  - Heart rate increased [None]
  - Heart rate irregular [None]
